FAERS Safety Report 5847020-8 (Version None)
Quarter: 2008Q3

REPORT INFORMATION
  Report Type: 
  Country: None (occurrence: None)
  Receive Date: 20080815
  Receipt Date: 20080811
  Transmission Date: 20090109
  Serious: Yes (Other)
  Sender: FDA-Public Use
  Company Number: CA-BAYER-200829362NA

PATIENT
  Age: 27 Year
  Sex: Male

DRUGS (9)
  1. KOGENATE FS [Suspect]
     Indication: HAEMOPHILIA
     Route: 042
     Dates: start: 20070202, end: 20070202
  2. KOGENATE FS [Suspect]
     Route: 042
     Dates: start: 20070227, end: 20070227
  3. KOGENATE FS [Suspect]
     Route: 042
     Dates: start: 20070228, end: 20070228
  4. KOGENATE FS [Suspect]
     Route: 042
     Dates: start: 20070301, end: 20070301
  5. KOGENATE FS [Suspect]
     Route: 042
     Dates: start: 20070303, end: 20070303
  6. KOGENATE FS [Suspect]
     Route: 042
     Dates: start: 20070304, end: 20070304
  7. KOGENATE FS [Suspect]
     Route: 042
     Dates: start: 20070305, end: 20070305
  8. KOGENATE FS [Suspect]
     Route: 042
     Dates: start: 20070306, end: 20070306
  9. KOGENATE FS [Suspect]
     Route: 042
     Dates: start: 20070307, end: 20070307

REACTIONS (1)
  - FACTOR VIII INHIBITION [None]
